FAERS Safety Report 21744829 (Version 1)
Quarter: 2022Q4

REPORT INFORMATION
  Report Type: Spontaneous
  Country: CN (occurrence: CN)
  Receive Date: 20221219
  Receipt Date: 20221219
  Transmission Date: 20230112
  Serious: Yes (Other)
  Sender: FDA-Public Use
  Company Number: None

PATIENT
  Age: 65 Year
  Sex: Female
  Weight: 76 kg

DRUGS (4)
  1. CYCLOPHOSPHAMIDE [Suspect]
     Active Substance: CYCLOPHOSPHAMIDE
     Indication: Breast cancer female
     Dosage: AT 8:57, 0.8 G, QD, DILUTED WITH 250 ML OF 0.9 % SODIUM CHLORIDE, 5TH STAGE OF CHEMOTHERAPY
     Route: 041
     Dates: start: 20221203, end: 20221203
  2. SODIUM CHLORIDE [Suspect]
     Active Substance: SODIUM CHLORIDE
     Indication: Medication dilution
     Dosage: AT 8:57, 250 ML, QD, USED TO DILUTE CYCLOPHOSPHAMIDE 0.8 G, 5TH STAGE OF CHEMOTHERAPY
     Route: 041
     Dates: start: 20221203, end: 20221203
  3. DEXTROSE MONOHYDRATE [Suspect]
     Active Substance: DEXTROSE MONOHYDRATE
     Indication: Medication dilution
     Dosage: AT 8:57, 250 ML, QD, USED TO DILUTE PIRARUBICIN 100 MG, 5TH STAGE OF CHEMOTHERAPY
     Route: 041
     Dates: start: 20221203, end: 20221203
  4. PIRARUBICIN [Suspect]
     Active Substance: PIRARUBICIN
     Indication: Breast cancer female
     Dosage: AT 8:57, 100 MG, QD, DILUTED WITH 250 ML OF 5% GLUCOSE, 5TH STAGE OF CHEMOTHERAPY
     Route: 041
     Dates: start: 20221203, end: 20221203

REACTIONS (1)
  - Nausea [Recovering/Resolving]

NARRATIVE: CASE EVENT DATE: 20221203
